FAERS Safety Report 4907727-3 (Version None)
Quarter: 2006Q1

REPORT INFORMATION
  Report Type: 
  Country: None (occurrence: None)
  Receive Date: 20060208
  Receipt Date: 20060208
  Transmission Date: 20060701
  Serious: Yes (Hospitalization)
  Sender: FDA-Public Use
  Company Number: None

PATIENT
  Age: 83 Year
  Sex: Male

DRUGS (5)
  1. FUROSEMIDE [Suspect]
     Indication: HYPERTENSION
     Dosage: 40MG QD
     Dates: start: 19990801
  2. ISOSORBIDE [Suspect]
     Indication: ANGINA PECTORIS
     Dosage: 20MG TID
     Dates: start: 20010601
  3. GATIFLOXACIN [Concomitant]
  4. METHYLPREDNISOLONE [Concomitant]
  5. ZOCOR [Concomitant]

REACTIONS (2)
  - DEHYDRATION [None]
  - SYNCOPE [None]
